FAERS Safety Report 8594002-1 (Version None)
Quarter: 2012Q3

REPORT INFORMATION
  Report Type: 
  Country: None (occurrence: None)
  Receive Date: 20120814
  Receipt Date: 20120801
  Transmission Date: 20120928
  Serious: Yes (Life-Threatening)
  Sender: FDA-Public Use
  Company Number: FR-FRI-1000036777

PATIENT
  Age: 53 Year
  Sex: Female

DRUGS (7)
  1. BIONOLYTE [Concomitant]
  2. INNOHEP [Concomitant]
     Indication: THROMBOSIS PROPHYLAXIS
     Route: 058
     Dates: start: 20120322
  3. KABIVEN [Concomitant]
     Dosage: 1 DF
     Route: 042
     Dates: start: 20120309
  4. MIDAZOLAM HCL [Concomitant]
     Indication: INSOMNIA
     Dosage: 1 MG / ML
     Route: 042
     Dates: start: 20120322
  5. SOLU-MEDROL [Concomitant]
     Dosage: 40 MG / 2 ML
     Route: 042
     Dates: start: 20120309
  6. CITALOPRAM [Suspect]
     Indication: ANXIETY
     Dosage: 20 MG / 0.5 ML
     Route: 042
     Dates: start: 20120324, end: 20120324
  7. OXYCODONE HYDROCHLORIDE [Concomitant]
     Indication: PAIN
     Dosage: 10 MG / ML
     Route: 042
     Dates: start: 20120322

REACTIONS (1)
  - HYPERTENSIVE CRISIS [None]
